FAERS Safety Report 11165940 (Version 2)
Quarter: 2015Q2

REPORT INFORMATION
  Report Type: Spontaneous
  Country: GR (occurrence: GR)
  Receive Date: 20150604
  Receipt Date: 20150611
  Transmission Date: 20150821
  Serious: Yes (Other)
  Sender: FDA-Public Use
  Company Number: PHHY2015GR065413

PATIENT
  Age: 45 Year
  Sex: Male

DRUGS (3)
  1. EXJADE [Suspect]
     Active Substance: DEFERASIROX
     Dosage: UNK
     Route: 065
     Dates: start: 20110713
  2. EXJADE [Suspect]
     Active Substance: DEFERASIROX
     Dosage: UNK
     Route: 065
     Dates: start: 20150416
  3. EXJADE [Suspect]
     Active Substance: DEFERASIROX
     Indication: PRODUCT USED FOR UNKNOWN INDICATION
     Dosage: UNK
     Route: 065
     Dates: start: 20080726

REACTIONS (7)
  - Urobilinogen urine increased [Recovered/Resolved]
  - Rash [Recovered/Resolved]
  - Blood bilirubin unconjugated increased [Recovered/Resolved]
  - Transaminases increased [Recovered/Resolved]
  - Haemoglobin decreased [Recovered/Resolved]
  - Coombs direct test positive [Recovered/Resolved]
  - Urine bilirubin increased [Recovered/Resolved]
